FAERS Safety Report 7101162-8 (Version None)
Quarter: 2010Q4

REPORT INFORMATION
  Report Type: 
  Country: None (occurrence: None)
  Receive Date: 20101108
  Receipt Date: 20101018
  Transmission Date: 20110411
  Serious: Yes (Other)
  Sender: FDA-Public Use
  Company Number: GAM-300-10-AU

PATIENT
  Sex: Female

DRUGS (1)
  1. OCTAGAM [Suspect]
     Indication: PRODUCT USED FOR UNKNOWN INDICATION
     Dosage: I.V.
     Route: 042
     Dates: start: 20090501, end: 20090501

REACTIONS (3)
  - NODULE [None]
  - THROMBECTOMY [None]
  - THROMBOSIS [None]
